FAERS Safety Report 8847931 (Version 2)
Quarter: 2012Q4

REPORT INFORMATION
  Report Type: 
  Country: US (occurrence: US)
  Receive Date: 20121018
  Receipt Date: 20121116
  Transmission Date: 20130627
  Serious: No
  Sender: FDA-Public Use
  Company Number: US-009507513-1210USA005422

PATIENT
  Age: 18 Year
  Sex: Female
  Weight: 123.81 kg

DRUGS (1)
  1. IMPLANON [Suspect]
     Dosage: 68 mg, UNK
     Dates: start: 201110

REACTIONS (2)
  - Weight increased [Not Recovered/Not Resolved]
  - Medical device complication [Unknown]
